FAERS Safety Report 24022445 (Version 2)
Quarter: 2024Q3

REPORT INFORMATION
  Report Type: Report from Study
  Country: AR (occurrence: AR)
  Receive Date: 20240627
  Receipt Date: 20240710
  Transmission Date: 20241017
  Serious: No
  Sender: ROCHE
  Company Number: AR-ROCHE-3525213

PATIENT
  Age: 83 Year
  Sex: Female
  Weight: 46.0 kg

DRUGS (4)
  1. ROZLYTREK [Suspect]
     Active Substance: ENTRECTINIB
     Indication: Non-small cell lung cancer metastatic
     Route: 048
     Dates: start: 20230331
  2. OMEPRAZOLE [Concomitant]
     Active Substance: OMEPRAZOLE
  3. LORAZEPAM [Concomitant]
     Active Substance: LORAZEPAM
     Indication: Anxiety
  4. CODELASA (ARGENTINA) [Concomitant]
     Indication: Cough

REACTIONS (2)
  - Anaemia [Not Recovered/Not Resolved]
  - Blood alkaline phosphatase increased [Not Recovered/Not Resolved]

NARRATIVE: CASE EVENT DATE: 20240306
